FAERS Safety Report 19627666 (Version 1)
Quarter: 2021Q3

REPORT INFORMATION
  Report Type: Spontaneous
  Country: JP (occurrence: JP)
  Receive Date: 20210728
  Receipt Date: 20210728
  Transmission Date: 20211014
  Serious: Yes (Hospitalization)
  Sender: FDA-Public Use
  Company Number: JP-ASTRAZENECA-2021A476450

PATIENT
  Age: 80 Year
  Sex: Male
  Weight: 55 kg

DRUGS (3)
  1. LYNPARZA [Suspect]
     Active Substance: OLAPARIB
     Indication: PROSTATE CANCER
     Dosage: DOSE UNKNOWN
     Route: 048
     Dates: end: 20210421
  2. LYNPARZA [Suspect]
     Active Substance: OLAPARIB
     Indication: PROSTATE CANCER
     Dosage: DOSE UNKNOWN
     Route: 048
     Dates: start: 20210104, end: 20210105
  3. FERROMIA [Concomitant]
     Active Substance: SODIUM FERROUS CITRATE

REACTIONS (1)
  - Campylobacter gastroenteritis [Recovered/Resolved]

NARRATIVE: CASE EVENT DATE: 20210105
